FAERS Safety Report 7235703-7 (Version None)
Quarter: 2011Q1

REPORT INFORMATION
  Report Type: 
  Country: None (occurrence: None)
  Receive Date: 20110120
  Receipt Date: 20110110
  Transmission Date: 20110831
  Serious: Yes (Death)
  Sender: FDA-Public Use
  Company Number: US-MYLANLABS-2010S1017284

PATIENT
  Age: 63 Year
  Sex: Male
  Weight: 89.81 kg

DRUGS (3)
  1. EMSAM [Suspect]
     Indication: DEPRESSION
     Dosage: CHANGED Q24H
     Route: 062
     Dates: start: 20100623, end: 20100701
  2. MARIJUANA [Suspect]
  3. ALCOHOL [Suspect]

REACTIONS (4)
  - CERVICAL VERTEBRAL FRACTURE [None]
  - SUBARACHNOID HAEMORRHAGE [None]
  - FALL [None]
  - HAEMATOMA [None]
